FAERS Safety Report 4952799-3 (Version None)
Quarter: 2006Q1

REPORT INFORMATION
  Report Type: 
  Country: None (occurrence: None)
  Receive Date: 20060320
  Receipt Date: 20060309
  Transmission Date: 20060701
  Serious: Yes (Hospitalization, Disabling)
  Sender: FDA-Public Use
  Company Number: 2006034522

PATIENT
  Sex: Female
  Weight: 117.9352 kg

DRUGS (5)
  1. ZOLOFT [Suspect]
     Indication: ILL-DEFINED DISORDER
     Dosage: 25 MG
  2. CELEBREX [Suspect]
     Indication: BACK PAIN
     Dates: start: 19990801
  3. MOBIC [Suspect]
     Indication: BACK PAIN
  4. SINGULAIR ^MERCK^ (MONTELUKAST SODIUM) [Concomitant]
  5. PROTONIX [Concomitant]

REACTIONS (10)
  - BACK PAIN [None]
  - CARDIAC FAILURE CONGESTIVE [None]
  - CONDITION AGGRAVATED [None]
  - CRYING [None]
  - DRUG EXPOSURE DURING PREGNANCY [None]
  - EMOTIONAL DISORDER [None]
  - FALSE LABOUR [None]
  - FLUID OVERLOAD [None]
  - FLUID RETENTION [None]
  - PREGNANCY [None]
